FAERS Safety Report 18034425 (Version 1)
Quarter: 2020Q3

REPORT INFORMATION
  Report Type: Spontaneous
  Country: AU (occurrence: AU)
  Receive Date: 20200716
  Receipt Date: 20200716
  Transmission Date: 20201103
  Serious: Yes (Hospitalization)
  Sender: FDA-Public Use
  Company Number: AU-BIOGEN-2020BI00894727

PATIENT
  Sex: Female

DRUGS (3)
  1. PREDNISONE. [Concomitant]
     Active Substance: PREDNISONE
     Indication: PRODUCT USED FOR UNKNOWN INDICATION
     Route: 065
  2. TYSABRI [Suspect]
     Active Substance: NATALIZUMAB
     Indication: MULTIPLE SCLEROSIS
     Route: 042
  3. TYSABRI [Suspect]
     Active Substance: NATALIZUMAB
     Route: 042

REACTIONS (26)
  - Peripheral vascular disorder [Unknown]
  - Syncope [Unknown]
  - Retching [Unknown]
  - Pyrexia [Unknown]
  - Rash [Unknown]
  - Dizziness [Unknown]
  - Muscle spasticity [Unknown]
  - Hypoaesthesia [Unknown]
  - Herpes zoster [Unknown]
  - Multiple sclerosis relapse [Unknown]
  - Vomiting [Unknown]
  - Gait disturbance [Unknown]
  - Oral pruritus [Unknown]
  - Sinus disorder [Unknown]
  - Abdominal pain upper [Unknown]
  - Hypokinesia [Unknown]
  - Arthralgia [Unknown]
  - Sneezing [Unknown]
  - Swelling [Unknown]
  - Drug ineffective [Unknown]
  - Multiple sclerosis [Unknown]
  - Paraesthesia [Unknown]
  - Alopecia [Unknown]
  - Feeling cold [Unknown]
  - Mouth ulceration [Unknown]
  - Hypersensitivity [Unknown]
